FAERS Safety Report 10047766 (Version 1)
Quarter: 2014Q1

REPORT INFORMATION
  Report Type: Spontaneous
  Country: GB (occurrence: None)
  Receive Date: 20140327
  Receipt Date: 20140327
  Transmission Date: 20141002
  Serious: Yes (Other)
  Sender: FDA-Public Use
  Company Number: 2252082

PATIENT
  Age: 63 Year
  Sex: Female
  Weight: 110.4 kg

DRUGS (6)
  1. PACLITAXEL [Suspect]
     Indication: NEOPLASM MALIGNANT
     Dosage: 30 MG MILLIGRAM(S) (UNKNOWN) INTRAVENOUS (NOT OTHERWISE SPECIFIED)
     Route: 042
     Dates: start: 20140228, end: 20140228
  2. HYOSCINE BUTYLBROMIDE [Concomitant]
  3. DOMPERIDONE [Concomitant]
  4. DEXAMETHASONE [Concomitant]
  5. NAPROXEN [Concomitant]
  6. DOCUSATE [Concomitant]

REACTIONS (3)
  - Dyspnoea [None]
  - Flushing [None]
  - Palpitations [None]
